FAERS Safety Report 25221713 (Version 3)
Quarter: 2025Q2

REPORT INFORMATION
  Report Type: Spontaneous
  Country: US (occurrence: US)
  Receive Date: 20250421
  Receipt Date: 20250616
  Transmission Date: 20250716
  Serious: No
  Sender: SANOFI AVENTIS
  Company Number: US-SA-2025SA090107

PATIENT
  Age: 71 Year
  Sex: Female

DRUGS (15)
  1. DUPIXENT [Suspect]
     Active Substance: DUPILUMAB
     Indication: Asthma
     Dosage: 300 MG, QOW
     Route: 058
     Dates: start: 20250327
  2. ALBUTEROL SULFATE [Concomitant]
     Active Substance: ALBUTEROL SULFATE
  3. ANORO ELLIPTA [Concomitant]
     Active Substance: UMECLIDINIUM BROMIDE\VILANTEROL TRIFENATATE
  4. AZELASTINE [Concomitant]
     Active Substance: AZELASTINE
  5. CLONIDINE [Concomitant]
     Active Substance: CLONIDINE
  6. CLOTRIMAZOLE [Concomitant]
     Active Substance: CLOTRIMAZOLE
  7. DILTIAZEM [Concomitant]
     Active Substance: DILTIAZEM
  8. FAMOTIDINE [Concomitant]
     Active Substance: FAMOTIDINE
  9. FLUCONAZOLE [Concomitant]
     Active Substance: FLUCONAZOLE
  10. IPRATROPIUM [Concomitant]
     Active Substance: IPRATROPIUM
  11. MONTELUKAST [Concomitant]
     Active Substance: MONTELUKAST
  12. OMEPRAZOLE [Concomitant]
     Active Substance: OMEPRAZOLE
  13. OMEGA 3 [Concomitant]
     Active Substance: CAPSAICIN
  14. VITAMIN B12 [Concomitant]
     Active Substance: CYANOCOBALAMIN
  15. VITAMIN D [Concomitant]
     Active Substance: VITAMIN D NOS

REACTIONS (2)
  - Immune system disorder [Unknown]
  - Impaired quality of life [Not Recovered/Not Resolved]

NARRATIVE: CASE EVENT DATE: 20250101
